FAERS Safety Report 6902382-5 (Version None)
Quarter: 2010Q3

REPORT INFORMATION
  Report Type: 
  Country: None (occurrence: None)
  Receive Date: 20100803
  Receipt Date: 20080519
  Transmission Date: 20110219
  Serious: No
  Sender: FDA-Public Use
  Company Number: US-PFIZER INC-2008026606

PATIENT
  Sex: Female
  Weight: 100 kg

DRUGS (12)
  1. LYRICA [Suspect]
     Indication: FIBROMYALGIA
     Dates: start: 20080307, end: 20080322
  2. LEVOXYL [Concomitant]
  3. OMEPRAZOLE [Concomitant]
  4. MONTELUKAST SODIUM [Concomitant]
  5. HYDROCHLOROTHIAZIDE [Concomitant]
  6. ACETYLSALICYLIC ACID SRT [Concomitant]
  7. IRON [Concomitant]
  8. MIRAPEX [Concomitant]
  9. VITAMIN TAB [Concomitant]
  10. ADVAIR DISKUS 100/50 [Concomitant]
  11. ALBUTEROL [Concomitant]
  12. AMBIEN [Concomitant]

REACTIONS (3)
  - ABDOMINAL PAIN UPPER [None]
  - PRURITUS [None]
  - URTICARIA [None]
